FAERS Safety Report 14951034 (Version 4)
Quarter: 2019Q3

REPORT INFORMATION
  Report Type: Report from Study
  Country: US (occurrence: US)
  Receive Date: 20180530
  Receipt Date: 20190922
  Transmission Date: 20191004
  Serious: Yes (Life-Threatening, Hospitalization)
  Sender: FDA-Public Use
  Company Number: US-CELGENEUS-USA-20171211484

PATIENT
  Age: 40 Year
  Sex: Male
  Weight: 93 kg

DRUGS (101)
  1. AG-221 [Suspect]
     Active Substance: ENASIDENIB
     Indication: ACUTE MYELOID LEUKAEMIA
     Dosage: 100 MILLIGRAM
     Route: 048
     Dates: start: 20170817, end: 20171009
  2. CETIRIZINE [Concomitant]
     Active Substance: CETIRIZINE HYDROCHLORIDE
     Indication: MULTIPLE ALLERGIES
     Route: 048
     Dates: start: 20170927
  3. DIPHENHYDRAMINE. [Concomitant]
     Active Substance: DIPHENHYDRAMINE
     Route: 041
     Dates: start: 20171231, end: 20180103
  4. LEVOFLOXACIN. [Concomitant]
     Active Substance: LEVOFLOXACIN
     Indication: BACTERIAL INFECTION
     Dosage: 750 MILLIGRAM
     Route: 048
     Dates: start: 20171010
  5. METRONIDAZOLE. [Concomitant]
     Active Substance: METRONIDAZOLE
     Indication: CLOSTRIDIUM DIFFICILE INFECTION
     Dosage: 500 MILLIGRAM
     Route: 041
  6. SODIUM CHLORIDE. [Concomitant]
     Active Substance: SODIUM CHLORIDE
     Indication: DEHYDRATION
     Dosage: .9 PERCENT
     Route: 041
     Dates: start: 20171210, end: 20171215
  7. SODIUM CHLORIDE. [Concomitant]
     Active Substance: SODIUM CHLORIDE
     Dosage: 20 MILLILITER
     Route: 065
  8. AMPICILLIN [Concomitant]
     Active Substance: AMPICILLIN
     Route: 041
     Dates: start: 20170924, end: 20171225
  9. IOHEXOL [Concomitant]
     Active Substance: IOHEXOL
     Dosage: 50 MILLILITER
     Route: 048
     Dates: start: 20171224
  10. LIDOCAINE-EPINEPHRINE [Concomitant]
     Active Substance: EPINEPHRINE\LIDOCAINE
     Indication: ANAESTHESIA
     Dosage: 2 PERCENT
     Route: 058
     Dates: start: 20180103, end: 20180103
  11. LIDOCAINE-EPINEPHRINE [Concomitant]
     Active Substance: EPINEPHRINE\LIDOCAINE
     Dosage: 2 PERCENT
     Route: 061
     Dates: start: 20180103, end: 20180103
  12. LIDOCAINE. [Concomitant]
     Active Substance: LIDOCAINE
     Indication: LOCAL ANAESTHESIA
     Dosage: 1 PERCENT
     Route: 065
     Dates: start: 20171229, end: 20171229
  13. TOBRAMYCIN. [Concomitant]
     Active Substance: TOBRAMYCIN
     Indication: SEPSIS
     Route: 041
     Dates: start: 20171224, end: 20171224
  14. MIDAZOLAM [Concomitant]
     Active Substance: MIDAZOLAM HYDROCHLORIDE
     Indication: SEDATION
     Route: 041
     Dates: start: 20171229, end: 20171229
  15. ACETAMINOPHEN. [Concomitant]
     Active Substance: ACETAMINOPHEN
     Route: 048
     Dates: start: 20171224, end: 20180103
  16. DEXAMETHASONE. [Concomitant]
     Active Substance: DEXAMETHASONE
     Route: 048
     Dates: start: 20171214, end: 20171214
  17. DIPHENHYDRAMINE. [Concomitant]
     Active Substance: DIPHENHYDRAMINE
     Route: 041
     Dates: start: 20171228, end: 20171229
  18. LEVOFLOXACIN. [Concomitant]
     Active Substance: LEVOFLOXACIN
     Indication: PNEUMONIA MORAXELLA
     Route: 048
     Dates: start: 20171201, end: 20171211
  19. ENSURE COMPLETE [Concomitant]
     Route: 048
     Dates: start: 20171204
  20. MAGNESIUM SULFATE. [Concomitant]
     Active Substance: MAGNESIUM SULFATE
     Indication: BLOOD MAGNESIUM DECREASED
     Route: 041
     Dates: start: 20171224, end: 20171224
  21. FAMOTIDINE. [Concomitant]
     Active Substance: FAMOTIDINE
     Indication: INFUSION RELATED REACTION
     Route: 041
     Dates: start: 20180101, end: 20180102
  22. SIMETHICON [Concomitant]
     Active Substance: DIMETHICONE
     Indication: ABDOMINAL PAIN
     Route: 048
     Dates: start: 20171226, end: 20171227
  23. ACYCLOVIR. [Concomitant]
     Active Substance: ACYCLOVIR
     Indication: PROPHYLAXIS
     Dosage: 10 MILLIGRAM/KILOGRAM
     Route: 041
  24. DEXAMETHASONE. [Concomitant]
     Active Substance: DEXAMETHASONE
     Indication: DRY EYE
     Dosage: .1 PERCENT
     Route: 047
     Dates: start: 20171210, end: 20171217
  25. DIPHENHYDRAMINE. [Concomitant]
     Active Substance: DIPHENHYDRAMINE
     Route: 041
     Dates: start: 20171224, end: 20171224
  26. SODIUM CHLORIDE. [Concomitant]
     Active Substance: SODIUM CHLORIDE
     Dosage: 0-250ML
     Route: 041
  27. CEFEPIME [Concomitant]
     Active Substance: CEFEPIME HYDROCHLORIDE
     Route: 041
     Dates: start: 20171224, end: 20180101
  28. FUROSEMIDE. [Concomitant]
     Active Substance: FUROSEMIDE
     Indication: OEDEMA
     Route: 041
     Dates: start: 20171230, end: 20171231
  29. PANTOPRAZOLE [Concomitant]
     Active Substance: PANTOPRAZOLE
     Indication: GASTROOESOPHAGEAL REFLUX DISEASE
     Route: 048
     Dates: start: 20171226, end: 20180103
  30. CETACAINE ANESTHETIC [Concomitant]
     Active Substance: BENZOCAINE\BUTAMBEN\TETRACAINE HYDROCHLORIDE
     Indication: LOCAL ANAESTHESIA
     Route: 061
     Dates: start: 20171229, end: 20171229
  31. POSACONAZOLE [Concomitant]
     Active Substance: POSACONAZOLE
     Indication: NAIL INFECTION
     Route: 048
     Dates: start: 20171226, end: 20180102
  32. MIDAZOLAM [Concomitant]
     Active Substance: MIDAZOLAM HYDROCHLORIDE
     Route: 041
     Dates: start: 20180103, end: 20180103
  33. CHLORHEXIDINE [Concomitant]
     Active Substance: CHLORHEXIDINE
     Dosage: 30 MILLILITER
     Route: 048
  34. DEXAMETHASONE. [Concomitant]
     Active Substance: DEXAMETHASONE
     Indication: INFLAMMATION
     Route: 048
     Dates: start: 20171210, end: 20171210
  35. ENOXAPARIN [Concomitant]
     Active Substance: ENOXAPARIN
     Indication: THROMBOSIS
     Route: 058
     Dates: start: 20171219, end: 20180103
  36. FLUCONAZOLE. [Concomitant]
     Active Substance: FLUCONAZOLE
     Indication: FUNGAL INFECTION
     Dosage: 200 MILLIGRAM
     Route: 048
     Dates: start: 20170927, end: 20180103
  37. FLUCONAZOLE. [Concomitant]
     Active Substance: FLUCONAZOLE
     Indication: PROPHYLAXIS
     Dosage: 400 MILLIGRAM
     Route: 048
  38. MELATONIN [Concomitant]
     Active Substance: MELATONIN
     Indication: INSOMNIA
     Route: 048
     Dates: start: 20170912, end: 20171206
  39. METRONIDAZOLE. [Concomitant]
     Active Substance: METRONIDAZOLE
     Indication: BACTERIAL INFECTION
     Dosage: 500 MILLIGRAM
     Route: 048
     Dates: start: 20171213, end: 20171213
  40. METRONIDAZOLE. [Concomitant]
     Active Substance: METRONIDAZOLE
     Route: 041
     Dates: start: 20171224, end: 20171226
  41. ONDANSETRON [Concomitant]
     Active Substance: ONDANSETRON
     Dosage: 4 MILLIGRAM
     Route: 065
     Dates: start: 2018
  42. OXYCODONE [Concomitant]
     Active Substance: OXYCODONE
     Indication: PROPHYLAXIS
     Route: 048
     Dates: start: 20171204, end: 20180227
  43. IOHEXOL [Concomitant]
     Active Substance: IOHEXOL
     Indication: PREMEDICATION
     Dosage: 110 MILLILITER
     Route: 041
     Dates: start: 20171224, end: 20171224
  44. AG-221 [Suspect]
     Active Substance: ENASIDENIB
     Dosage: 100 MILLIGRAM
     Route: 048
     Dates: start: 20170817, end: 20171223
  45. DAUNORUBICIN [Suspect]
     Active Substance: DAUNORUBICIN
     Indication: ACUTE MYELOID LEUKAEMIA
     Dosage: 120 MILLIGRAM
     Route: 041
     Dates: start: 20170817, end: 20170904
  46. ACYCLOVIR. [Concomitant]
     Active Substance: ACYCLOVIR
     Indication: VIRAL INFECTION
     Dosage: 600 MILLIGRAM
     Route: 048
     Dates: start: 20171010
  47. ACYCLOVIR. [Concomitant]
     Active Substance: ACYCLOVIR
     Dosage: 800 MILLIGRAM
     Route: 065
     Dates: start: 2018
  48. ACYCLOVIR. [Concomitant]
     Active Substance: ACYCLOVIR
     Route: 041
     Dates: start: 20171224, end: 20171225
  49. DOCUSATE [Concomitant]
     Active Substance: DOCUSATE
     Indication: CONSTIPATION
     Route: 048
     Dates: start: 20170811
  50. FLUTICASONE. [Concomitant]
     Active Substance: FLUTICASONE
     Indication: MULTIPLE ALLERGIES
     Route: 045
     Dates: start: 20170912
  51. METRONIDAZOLE. [Concomitant]
     Active Substance: METRONIDAZOLE
     Indication: ABDOMINAL PAIN
     Route: 048
     Dates: start: 20171227, end: 20180113
  52. ENSURE COMPLETE [Concomitant]
     Indication: NUTRITIONAL SUPPLEMENTATION
     Dosage: 0.04-1.05 GRAM-KCAL/ML
     Route: 048
     Dates: start: 20171102, end: 20171201
  53. ONDANSETRON [Concomitant]
     Active Substance: ONDANSETRON
     Route: 048
     Dates: start: 20171212, end: 20171212
  54. ONDANSETRON [Concomitant]
     Active Substance: ONDANSETRON
     Route: 048
     Dates: start: 20171225, end: 20180103
  55. SENNA [Concomitant]
     Active Substance: SENNA LEAF\SENNOSIDES\SENNOSIDES A AND B
     Indication: CONSTIPATION
     Route: 048
     Dates: start: 20170811, end: 20171206
  56. SODIUM CHLORIDE. [Concomitant]
     Active Substance: SODIUM CHLORIDE
     Dosage: 15 MILLILITER
     Route: 065
  57. OXYCODONE [Concomitant]
     Active Substance: OXYCODONE
     Indication: PAIN
     Dosage: 10 MILLIGRAM
     Route: 048
     Dates: start: 20180108, end: 20180112
  58. CEFEPIME [Concomitant]
     Active Substance: CEFEPIME HYDROCHLORIDE
     Indication: PRODUCT USED FOR UNKNOWN INDICATION
     Dosage: 6 GRAM
     Route: 041
  59. PACKED RED BLOOD CELLS [Concomitant]
     Active Substance: HUMAN RED BLOOD CELL
     Indication: PANCYTOPENIA
     Dosage: 2 IU (INTERNATIONAL UNIT) UP TO 9.1
     Route: 065
     Dates: start: 20180113
  60. INFLUENZA [Concomitant]
     Active Substance: INFLUENZA VIRUS VACCINE
     Indication: INFLUENZA
     Route: 030
     Dates: start: 20170317, end: 20171227
  61. CIPROFLOXACIN. [Concomitant]
     Active Substance: CIPROFLOXACIN
     Indication: SEPSIS
     Route: 048
     Dates: start: 20180101, end: 20180102
  62. AMBISOME [Concomitant]
     Active Substance: AMPHOTERICIN B
     Indication: SEPSIS
     Route: 041
     Dates: start: 20171224, end: 20171224
  63. NUTRIONAL SUPPLEMENT [Concomitant]
     Indication: NUTRITIONAL SUPPLEMENTATION
     Route: 048
     Dates: start: 20171204
  64. AG-221 [Suspect]
     Active Substance: ENASIDENIB
     Dosage: 100 MILLIGRAM
     Route: 048
     Dates: end: 20180108
  65. AG-221 [Suspect]
     Active Substance: ENASIDENIB
     Dosage: 100 MILLIGRAM
     Route: 048
     Dates: start: 20180109, end: 20180121
  66. ACETAMINOPHEN. [Concomitant]
     Active Substance: ACETAMINOPHEN
     Indication: PYREXIA
     Route: 048
     Dates: start: 20171219, end: 20171219
  67. DIPHENHYDRAMINE. [Concomitant]
     Active Substance: DIPHENHYDRAMINE
     Indication: HYPERSENSITIVITY
     Route: 048
     Dates: start: 20171219, end: 20171219
  68. FILGRASTIM [Concomitant]
     Active Substance: FILGRASTIM
     Route: 058
     Dates: start: 20171216, end: 20180227
  69. SODIUM CHLORIDE. [Concomitant]
     Active Substance: SODIUM CHLORIDE
     Route: 041
     Dates: start: 20171231, end: 20180103
  70. ENASIDENIB [Concomitant]
     Active Substance: ENASIDENIB
     Indication: PRODUCT USED FOR UNKNOWN INDICATION
     Dosage: 100 MILLIGRAM
     Route: 048
  71. AMPICILLIN [Concomitant]
     Active Substance: AMPICILLIN
     Indication: SEPSIS
     Dosage: 12 GRAM
     Route: 041
  72. LACTATED RINGERS SOLUTION [Concomitant]
     Active Substance: CALCIUM CHLORIDE\POTASSIUM CHLORIDE\SODIUM CHLORIDE\SODIUM LACTATE
     Indication: DEHYDRATION
     Route: 041
     Dates: start: 20171224, end: 20171224
  73. SOLU-CORTEF [Concomitant]
     Active Substance: HYDROCORTISONE SODIUM SUCCINATE
     Indication: INFUSION RELATED REACTION
     Route: 041
     Dates: start: 20180101, end: 20180101
  74. FENTANYL. [Concomitant]
     Active Substance: FENTANYL
     Indication: PAIN
     Route: 041
     Dates: start: 20171229, end: 20171229
  75. CALCIUM GLUCONATE. [Concomitant]
     Active Substance: CALCIUM GLUCONATE
     Indication: BLOOD CALCIUM DECREASED
     Dosage: 10 PERCENT
     Route: 041
     Dates: start: 20171225, end: 20171225
  76. CYTARABINE. [Suspect]
     Active Substance: CYTARABINE
     Indication: ACUTE MYELOID LEUKAEMIA
     Dosage: 6120 MILLIGRAM
     Route: 041
     Dates: start: 20170817, end: 20171215
  77. DEXAMETHASONE. [Concomitant]
     Active Substance: DEXAMETHASONE
     Route: 048
     Dates: start: 20171212, end: 20171212
  78. DIPHENHYDRAMINE. [Concomitant]
     Active Substance: DIPHENHYDRAMINE
     Route: 041
     Dates: start: 20171226, end: 20171226
  79. FILGRASTIM [Concomitant]
     Active Substance: FILGRASTIM
     Indication: LEUKOPENIA
     Route: 058
     Dates: start: 20171010, end: 20171211
  80. LEVOFLOXACIN. [Concomitant]
     Active Substance: LEVOFLOXACIN
     Dosage: 750 MILLIGRAM
     Route: 065
     Dates: start: 2018, end: 20180112
  81. LEVOFLOXACIN. [Concomitant]
     Active Substance: LEVOFLOXACIN
     Route: 048
     Dates: start: 20180102, end: 20180215
  82. MELATONIN [Concomitant]
     Active Substance: MELATONIN
     Route: 048
     Dates: start: 20171229, end: 20180102
  83. METRONIDAZOLE. [Concomitant]
     Active Substance: METRONIDAZOLE
     Indication: DIARRHOEA
     Dosage: 500 MILLIGRAM
     Route: 065
     Dates: start: 2018
  84. ONDANSETRON [Concomitant]
     Active Substance: ONDANSETRON
     Route: 048
     Dates: start: 20171214, end: 20171214
  85. ONDANSETRON [Concomitant]
     Active Substance: ONDANSETRON
     Route: 048
     Dates: start: 20180102
  86. SODIUM CHLORIDE. [Concomitant]
     Active Substance: SODIUM CHLORIDE
     Dosage: .9 PERCENT
     Route: 041
     Dates: start: 20171219, end: 20171219
  87. SODIUM CHLORIDE. [Concomitant]
     Active Substance: SODIUM CHLORIDE
     Route: 041
     Dates: start: 20171228, end: 20171229
  88. IBUPROFEN. [Concomitant]
     Active Substance: IBUPROFEN
     Indication: PAIN
     Dosage: 2400 MILLIGRAM
     Route: 065
     Dates: start: 20180113, end: 20180119
  89. CITRIC ACID [Concomitant]
     Active Substance: CITRIC ACID MONOHYDRATE
     Indication: SKIN LACERATION
     Route: 065
  90. MICONAZOLE. [Concomitant]
     Active Substance: MICONAZOLE
     Indication: NAIL INFECTION
     Dosage: 2 PERCENT
     Route: 061
     Dates: start: 20171228
  91. ACYCLOVIR. [Concomitant]
     Active Substance: ACYCLOVIR
     Dosage: 10 MILLIGRAM/KILOGRAM
     Route: 041
     Dates: start: 20171225
  92. CHLORHEXIDINE [Concomitant]
     Active Substance: CHLORHEXIDINE
     Indication: BACTERIAL INFECTION
     Route: 048
     Dates: start: 20170926
  93. FLUCONAZOLE. [Concomitant]
     Active Substance: FLUCONAZOLE
     Dosage: 200 MILLIGRAM
     Route: 065
     Dates: start: 2018
  94. MELATONIN [Concomitant]
     Active Substance: MELATONIN
     Route: 048
     Dates: start: 20171226, end: 20171227
  95. ENSURE COMPLETE [Concomitant]
     Dosage: 0.04-1.05 GRAM-KCAL/ML
     Route: 065
     Dates: start: 2018
  96. ONDANSETRON [Concomitant]
     Active Substance: ONDANSETRON
     Indication: NAUSEA
     Dosage: 4 MILLIGRAM
     Route: 048
     Dates: start: 20171210, end: 20171210
  97. SODIUM CHLORIDE. [Concomitant]
     Active Substance: SODIUM CHLORIDE
     Route: 041
     Dates: start: 20171224, end: 20171226
  98. MAGNESIUM SULFATE. [Concomitant]
     Active Substance: MAGNESIUM SULFATE
     Route: 041
     Dates: start: 20180101, end: 20180101
  99. MUCINEX [Concomitant]
     Active Substance: GUAIFENESIN
     Indication: COUGH
     Route: 048
     Dates: start: 20171227
  100. CEFTRIAXONE. [Concomitant]
     Active Substance: CEFTRIAXONE
     Indication: SEPSIS
     Route: 041
     Dates: start: 20180101, end: 20180102
  101. MIRALAX [Concomitant]
     Active Substance: POLYETHYLENE GLYCOL 3350
     Indication: CONSTIPATION
     Route: 048
     Dates: start: 20171231, end: 20171231

REACTIONS (3)
  - Lymphadenopathy [Recovered/Resolved]
  - Scrotal infection [Recovered/Resolved]
  - Sepsis [Recovered/Resolved]

NARRATIVE: CASE EVENT DATE: 20171224
